FAERS Safety Report 10041364 (Version 1)
Quarter: 2014Q1

REPORT INFORMATION
  Report Type: Spontaneous
  Country: DE (occurrence: DE)
  Receive Date: 20140327
  Receipt Date: 20140327
  Transmission Date: 20141002
  Serious: Yes (Hospitalization, Congenital Anomaly)
  Sender: FDA-Public Use
  Company Number: DE-WATSON-2014-05431

PATIENT
  Age: 1 Day
  Sex: Male
  Weight: 4 kg

DRUGS (5)
  1. SERTRALINE (UNKNOWN) [Suspect]
     Indication: ANXIETY DISORDER
     Dosage: 125 MG, DAILY
     Route: 064
     Dates: start: 20120120, end: 20121015
  2. OPIPRAMOL (UNKNOWN) [Suspect]
     Indication: DEPRESSION
     Dosage: 50 MG, DAILY
     Route: 064
     Dates: start: 20120120
  3. ZOPICLONE (UNKNOWN) [Suspect]
     Indication: SLEEP DISORDER
     Dosage: 7.5 MG, DAILY
     Route: 064
     Dates: start: 20120120
  4. FOLIC ACID [Concomitant]
     Indication: PROPHYLAXIS OF NEURAL TUBE DEFECT
     Dosage: 0.4 MG, DAILY
     Route: 064
     Dates: start: 20120302, end: 20121015
  5. NASENTROPFEN K [Concomitant]
     Indication: SUBSTANCE ABUSER
     Dosage: UNK
     Route: 064
     Dates: start: 20120120, end: 20121015

REACTIONS (6)
  - Kidney duplex [Not Recovered/Not Resolved]
  - Neonatal respiratory distress syndrome [Recovered/Resolved]
  - Urinary tract infection [Unknown]
  - Foetal macrosomia [Unknown]
  - Large for dates baby [Unknown]
  - Foetal exposure during pregnancy [Unknown]
